FAERS Safety Report 5249146-9 (Version None)
Quarter: 2007Q1

REPORT INFORMATION
  Report Type: 
  Country: None (occurrence: None)
  Receive Date: 20070223
  Receipt Date: 20070212
  Transmission Date: 20070707
  Serious: Yes (Hospitalization)
  Sender: FDA-Public Use
  Company Number: 2007-00371

PATIENT
  Age: 53 Year
  Sex: Female

DRUGS (6)
  1. VELCADE [Suspect]
     Indication: MULTIPLE MYELOMA
     Dosage: INTRAVENOUS
     Route: 042
     Dates: end: 20070102
  2. DEXAMETHASONE [Concomitant]
  3. THALIDOMIDE [Concomitant]
  4. AUGMENTIN '125' [Concomitant]
  5. CEFPODOXIME PROXETIL [Concomitant]
  6. CIPROFLOXACIN HCL [Concomitant]

REACTIONS (5)
  - BRONCHITIS [None]
  - EOSINOPHILIA [None]
  - HAEMODIALYSIS [None]
  - RASH [None]
  - RENAL FAILURE ACUTE [None]
